FAERS Safety Report 11146277 (Version 1)
Quarter: 2015Q2

REPORT INFORMATION
  Report Type: Spontaneous
  Country: IN (occurrence: None)
  Receive Date: 20150526
  Receipt Date: 20150526
  Transmission Date: 20150821
  Serious: Yes (Other)
  Sender: FDA-Public Use
  Company Number: 2015COR00102

PATIENT
  Age: 1 Day

DRUGS (1)
  1. PHENYTOIN. [Suspect]
     Active Substance: PHENYTOIN
     Indication: SEIZURE
     Route: 042

REACTIONS (8)
  - Purple glove syndrome [None]
  - Skin discolouration [None]
  - Capillary nail refill test abnormal [None]
  - Infusion site extravasation [None]
  - Oedema [None]
  - Oxygen saturation decreased [None]
  - Swelling [None]
  - Pulse pressure decreased [None]
